FAERS Safety Report 7783403-7 (Version None)
Quarter: 2011Q3

REPORT INFORMATION
  Report Type: 
  Country: None (occurrence: None)
  Receive Date: 20110926
  Receipt Date: 20110915
  Transmission Date: 20111222
  Serious: Yes (Hospitalization)
  Sender: FDA-Public Use
  Company Number: LEO-2011-00762

PATIENT
  Age: 78 Year
  Sex: Male

DRUGS (2)
  1. INNOHEP [Suspect]
     Indication: THROMBOSIS PROPHYLAXIS
     Dosage: SUBCUTANEOUS
     Route: 058
     Dates: start: 20110616, end: 20110618
  2. WARFARIN SODIUM [Concomitant]

REACTIONS (2)
  - HYPERTENSION [None]
  - MYOCARDITIS [None]
